FAERS Safety Report 6465528-1 (Version None)
Quarter: 2009Q4

REPORT INFORMATION
  Report Type: 
  Country: None (occurrence: None)
  Receive Date: 20091201
  Receipt Date: 20091124
  Transmission Date: 20100525
  Serious: Yes (Other)
  Sender: FDA-Public Use
  Company Number: US-GILEAD-2009-0025668

PATIENT
  Sex: Female
  Weight: 75.364 kg

DRUGS (11)
  1. LETAIRIS [Suspect]
     Indication: PULMONARY ARTERIAL HYPERTENSION
     Route: 048
     Dates: start: 20091001, end: 20091123
  2. COUMADIN [Concomitant]
  3. BENICAR [Concomitant]
  4. DIGOXIN [Concomitant]
  5. SYNTHROID [Concomitant]
  6. ZYRTEC [Concomitant]
  7. TIZANIDINE HCL [Concomitant]
  8. NEURONTIN [Concomitant]
  9. PRILOSEC [Concomitant]
  10. ACTOPLUS MET [Concomitant]
  11. VITAMIN B COMPLEX CAP [Concomitant]

REACTIONS (2)
  - CARDIAC FAILURE CONGESTIVE [None]
  - UNEVALUABLE EVENT [None]
